FAERS Safety Report 15082237 (Version 1)
Quarter: 2018Q2

REPORT INFORMATION
  Report Type: Spontaneous
  Country: US (occurrence: US)
  Receive Date: 20180607
  Receipt Date: 20180607
  Transmission Date: 20180711
  Serious: No
  Sender: FDA-Public Use
  Company Number: None

PATIENT
  Age: 59 Year

DRUGS (1)
  1. FASLODEX [Suspect]
     Active Substance: FULVESTRANT
     Dosage: ?          OTHER FREQUENCY:OTHER;?
     Route: 030
     Dates: start: 20180516, end: 20180606

REACTIONS (1)
  - Product use issue [None]

NARRATIVE: CASE EVENT DATE: 20180606
